FAERS Safety Report 16625534 (Version 3)
Quarter: 2019Q3

REPORT INFORMATION
  Report Type: Spontaneous
  Country: US (occurrence: US)
  Receive Date: 20190724
  Receipt Date: 20190910
  Transmission Date: 20191004
  Serious: No
  Sender: FDA-Public Use
  Company Number: US-PFIZER INC-2019279992

PATIENT
  Age: 70 Year
  Sex: Female

DRUGS (5)
  1. LATANOPROST. [Suspect]
     Active Substance: LATANOPROST
     Dosage: 1 GTT, 1X/DAY (BOTH EYES AT NIGHT)
     Route: 047
  2. LATANOPROST. [Suspect]
     Active Substance: LATANOPROST
     Dosage: 1 GTT, 1X/DAY (BOTH EYES AT NIGHT)
     Route: 047
  3. BETOPROLOL [Concomitant]
     Dosage: 1 GTT, 2X/DAY (1 DROP MORNING + NIGHT BOTH EYES)
     Route: 047
  4. LATANOPROST. [Suspect]
     Active Substance: LATANOPROST
     Indication: GLAUCOMA
     Dosage: 1 GTT, 1X/DAY (BOTH EYES AT NIGHT)
     Route: 047
  5. LATANOPROST. [Suspect]
     Active Substance: LATANOPROST
     Dosage: 1 GTT, 1X/DAY (BOTH EYES AT BEDTIME)
     Route: 047
     Dates: start: 201904, end: 201904

REACTIONS (1)
  - Drug ineffective [Recovered/Resolved]

NARRATIVE: CASE EVENT DATE: 201904
